FAERS Safety Report 5349425-0 (Version None)
Quarter: 2007Q2

REPORT INFORMATION
  Report Type: 
  Country: None (occurrence: None)
  Receive Date: 20070607
  Receipt Date: 20070529
  Transmission Date: 20071010
  Serious: Yes (Other)
  Sender: FDA-Public Use
  Company Number: JP-ROCHE-492186

PATIENT
  Age: 79 Year
  Sex: Female
  Weight: 53 kg

DRUGS (9)
  1. TAMIFLU [Suspect]
     Indication: INFLUENZA
     Route: 048
     Dates: start: 20070320, end: 20070324
  2. MEICELIN [Concomitant]
     Dosage: ROUTE REPORTED AS INJECTABLE.
     Route: 050
  3. NIFESLOW [Concomitant]
     Route: 048
  4. RENIVEZE [Concomitant]
     Route: 048
  5. CARVACRON [Concomitant]
     Route: 048
  6. SPIRONOLACTONE [Concomitant]
     Dosage: TRADE NAME REPORTED AS MERLACTONE.
     Route: 048
  7. BUFFERIN [Concomitant]
     Route: 048
  8. SIMVASTATIN [Concomitant]
     Dosage: TRADE NAME REPORTED AS LIPOZART.
     Route: 048
  9. DICLOFENAC SODIUM [Concomitant]
     Dosage: TRADE NAME REPORTED AS VONAFEC.
     Route: 054

REACTIONS (2)
  - DELIRIUM [None]
  - HALLUCINATION [None]
